FAERS Safety Report 23718241 (Version 3)
Quarter: 2024Q2

REPORT INFORMATION
  Report Type: Report from Study
  Country: US (occurrence: US)
  Receive Date: 20240408
  Receipt Date: 20240530
  Transmission Date: 20240715
  Serious: Yes (Hospitalization)
  Sender: FDA-Public Use
  Company Number: US-EXELIXIS-CABO-24075867

PATIENT
  Sex: Male

DRUGS (2)
  1. CABOMETYX [Suspect]
     Active Substance: CABOZANTINIB S-MALATE
     Indication: Renal cancer
     Dosage: 60 MG, QD
     Route: 048
     Dates: start: 202404, end: 202404
  2. CABOMETYX [Suspect]
     Active Substance: CABOZANTINIB S-MALATE
     Dosage: 60 MG, QD
     Route: 048

REACTIONS (7)
  - Groin abscess [Unknown]
  - Haematological infection [Recovering/Resolving]
  - Skin exfoliation [Recovering/Resolving]
  - Blister [Unknown]
  - Illness [Unknown]
  - Post procedural infection [Unknown]
  - Impaired healing [Unknown]
